FAERS Safety Report 15781848 (Version 1)
Quarter: 2019Q1

REPORT INFORMATION
  Report Type: Spontaneous
  Country: US (occurrence: US)
  Receive Date: 20190102
  Receipt Date: 20190102
  Transmission Date: 20190417
  Serious: Yes (Hospitalization)
  Sender: FDA-Public Use
  Company Number: US-PROCTER_AND_GAMBLE-GS18141331

PATIENT
  Age: 26 Year
  Sex: Male

DRUGS (1)
  1. HEAD AND SHOULDERS [Suspect]
     Active Substance: PYRITHIONE ZINC
     Dosage: QUARTER SIZED AMOUNT, ONE TIME
     Route: 061

REACTIONS (1)
  - Genital burning sensation [Recovered/Resolved]
